FAERS Safety Report 8950471 (Version 3)
Quarter: 2013Q1

REPORT INFORMATION
  Report Type: Spontaneous
  Country: IT (occurrence: DE)
  Receive Date: 20121206
  Receipt Date: 20130102
  Transmission Date: 20140127
  Serious: Yes (Hospitalization, Other)
  Sender: FDA-Public Use
  Company Number: DE-FRI-1000040869

PATIENT
  Age: 52 Year
  Sex: Female

DRUGS (3)
  1. FOSFOMYCIN [Suspect]
     Indication: URINARY TRACT INFECTION
     Dosage: 3000 MG
     Route: 048
     Dates: start: 20121010, end: 20121010
  2. ATACAND [Concomitant]
  3. PERISON [Concomitant]
     Indication: URINARY TRACT INFECTION
     Dates: start: 201209

REACTIONS (6)
  - Jaundice [Recovered/Resolved]
  - Autoimmune hepatitis [Recovered/Resolved]
  - Hepatic cirrhosis [Recovered/Resolved]
  - Blood bilirubin increased [Recovered/Resolved]
  - Transaminases increased [Recovered/Resolved]
  - Off label use [Recovered/Resolved]
